FAERS Safety Report 6841956-7 (Version None)
Quarter: 2010Q3

REPORT INFORMATION
  Report Type: 
  Country: None (occurrence: None)
  Receive Date: 20100714
  Receipt Date: 20080418
  Transmission Date: 20110219
  Serious: Yes (Other)
  Sender: FDA-Public Use
  Company Number: US-PFIZER INC-2007059974

PATIENT
  Sex: Female
  Weight: 63.636 kg

DRUGS (7)
  1. CHANTIX [Suspect]
     Indication: SMOKING CESSATION THERAPY
     Route: 048
     Dates: start: 20070501, end: 20070601
  2. WELLBUTRIN [Suspect]
     Indication: SMOKING CESSATION THERAPY
     Dosage: DAILY
     Route: 048
     Dates: start: 20070703, end: 20070101
  3. WELLBUTRIN [Suspect]
     Indication: DEPRESSION
  4. UNIVASC [Concomitant]
  5. VERELAN [Concomitant]
  6. DETROL LA [Concomitant]
     Route: 048
  7. PREVACID [Concomitant]
     Route: 048

REACTIONS (4)
  - ANXIETY [None]
  - COORDINATION ABNORMAL [None]
  - DEPRESSION [None]
  - SENSORY LOSS [None]
